FAERS Safety Report 4498604-3 (Version None)
Quarter: 2004Q4

REPORT INFORMATION
  Report Type: 
  Country: None (occurrence: None)
  Receive Date: 20041111
  Receipt Date: 20041101
  Transmission Date: 20050328
  Serious: Yes (Life-Threatening, Hospitalization)
  Sender: FDA-Public Use
  Company Number: 200420886GDDC

PATIENT
  Age: 59 Year
  Sex: Male

DRUGS (5)
  1. DOCETAXEL [Suspect]
     Indication: NON-SMALL CELL LUNG CANCER
     Route: 042
     Dates: start: 20040520, end: 20040823
  2. DEXAMETHASONE [Concomitant]
     Dates: start: 20040816
  3. RANIGAST [Concomitant]
     Dates: start: 20040816
  4. CELEBREX [Concomitant]
     Dates: start: 20040101
  5. CIPROFLOXACIN [Concomitant]
     Dates: start: 20040816, end: 20040823

REACTIONS (3)
  - HAEMOGLOBIN DECREASED [None]
  - PANCREATITIS ACUTE [None]
  - WHITE BLOOD CELL COUNT DECREASED [None]
